FAERS Safety Report 10929566 (Version 1)
Quarter: 2015Q1

REPORT INFORMATION
  Report Type: Spontaneous
  Country: US (occurrence: None)
  Receive Date: 20150317
  Receipt Date: 20150317
  Transmission Date: 20150721
  Serious: No
  Sender: FDA-Public Use
  Company Number: None

PATIENT
  Age: 56 Year
  Sex: Female

DRUGS (8)
  1. GEMFIBROZIL. [Suspect]
     Active Substance: GEMFIBROZIL
     Dates: start: 20131001, end: 20140103
  2. HYDROMORPHONE [Concomitant]
     Active Substance: HYDROMORPHONE
  3. NEXIUM [Concomitant]
     Active Substance: ESOMEPRAZOLE MAGNESIUM
  4. GLIPIZIDE. [Concomitant]
     Active Substance: GLIPIZIDE
  5. ALBUTEROL. [Concomitant]
     Active Substance: ALBUTEROL
  6. ATORVASTATIN [Suspect]
     Active Substance: ATORVASTATIN
     Dates: start: 20131001, end: 20140103
  7. METFORMIN [Concomitant]
     Active Substance: METFORMIN HYDROCHLORIDE
  8. VALSARTAN HCTZ [Concomitant]
     Active Substance: HYDROCHLOROTHIAZIDE\VALSARTAN

REACTIONS (4)
  - Acute hepatic failure [None]
  - Portal fibrosis [None]
  - Drug-induced liver injury [None]
  - Hepatic necrosis [None]

NARRATIVE: CASE EVENT DATE: 20140103
